FAERS Safety Report 6481798-8 (Version None)
Quarter: 2009Q4

REPORT INFORMATION
  Report Type: 
  Country: None (occurrence: None)
  Receive Date: 20091208
  Receipt Date: 20090818
  Transmission Date: 20100525
  Serious: No
  Sender: FDA-Public Use
  Company Number: US-AMGEN-KDL340235

PATIENT
  Sex: Female

DRUGS (5)
  1. ENBREL [Suspect]
     Indication: PSORIASIS
     Route: 058
     Dates: start: 20040701, end: 20081230
  2. UNSPECIFIED ANTIBIOTIC [Concomitant]
  3. ACIPHEX [Concomitant]
  4. THYROID TAB [Concomitant]
  5. CALCIUM WITH VITAMIN D [Concomitant]

REACTIONS (4)
  - HYPOTHYROIDISM [None]
  - NASOPHARYNGITIS [None]
  - PYOGENIC GRANULOMA [None]
  - VITAMIN D DECREASED [None]
